FAERS Safety Report 13856387 (Version 2)
Quarter: 2018Q1

REPORT INFORMATION
  Report Type: Spontaneous
  Country: IT (occurrence: IT)
  Receive Date: 20170810
  Receipt Date: 20180309
  Transmission Date: 20180508
  Serious: Yes (Hospitalization)
  Sender: FDA-Public Use
  Company Number: IT-PFIZER INC-2017345719

PATIENT
  Age: 51 Year
  Sex: Female

DRUGS (4)
  1. RELPAX [Suspect]
     Active Substance: ELETRIPTAN HYDROBROMIDE
     Indication: HEADACHE
     Dosage: 15 DF, MONTHLY
     Route: 048
     Dates: start: 20120101, end: 20170726
  2. PEPTAZOL /01159001/ [Concomitant]
     Active Substance: LANSOPRAZOLE
  3. GABAPENTIN. [Concomitant]
     Active Substance: GABAPENTIN
  4. DEBRIDAT /00465201/ [Suspect]
     Active Substance: TRIMEBUTINE MALEATE
     Dosage: 3 DF, DAILY
     Route: 048
     Dates: start: 20170701, end: 20170728

REACTIONS (6)
  - Headache [Recovering/Resolving]
  - Hyperprolactinaemia [Recovering/Resolving]
  - Sinus bradycardia [Recovering/Resolving]
  - Drug use disorder [Recovering/Resolving]
  - Drug abuse [Recovering/Resolving]
  - Depression [Recovering/Resolving]

NARRATIVE: CASE EVENT DATE: 20170726
